FAERS Safety Report 21708572 (Version 1)
Quarter: 2022Q4

REPORT INFORMATION
  Report Type: Spontaneous
  Country: US (occurrence: US)
  Receive Date: 20221210
  Receipt Date: 20221210
  Transmission Date: 20230113
  Serious: No
  Sender: FDA-Public Use
  Company Number: US-SA-SAC20221207001486

PATIENT
  Sex: Male
  Weight: 87.9 kg

DRUGS (14)
  1. AUBAGIO [Suspect]
     Active Substance: TERIFLUNOMIDE
     Indication: Multiple sclerosis
     Dosage: 14 MG, QD
     Route: 048
  2. LORATADINE [Concomitant]
     Active Substance: LORATADINE
     Dosage: UNK
  3. VITAMIN D3 [Concomitant]
     Active Substance: CHOLECALCIFEROL
     Dosage: UNK
  4. GABAPENTIN [Concomitant]
     Active Substance: GABAPENTIN
     Dosage: UNK
  5. PREDNISONE [Concomitant]
     Active Substance: PREDNISONE
     Dosage: UNK
  6. BACLOFEN [Concomitant]
     Active Substance: BACLOFEN
     Dosage: UNK
  7. DEXTROAMPHETAMINE HYDROCHLORIDE [Concomitant]
     Active Substance: DEXTROAMPHETAMINE HYDROCHLORIDE
     Dosage: UNK
  8. ARIPIPRAZOLE [Concomitant]
     Active Substance: ARIPIPRAZOLE
     Dosage: UNK
  9. OXYBUTYNIN CHLORIDE [Concomitant]
     Active Substance: OXYBUTYNIN CHLORIDE
     Dosage: UNK
  10. BUPROPION HYDROCHLORIDE [Concomitant]
     Active Substance: BUPROPION HYDROCHLORIDE
     Dosage: UNK
  11. CLOBETASOL [Concomitant]
     Active Substance: CLOBETASOL
     Dosage: UNK
  12. CYCLOBENZAPRINE HYDROCHLORIDE [Concomitant]
     Active Substance: CYCLOBENZAPRINE HYDROCHLORIDE
     Dosage: UNK
  13. METOCLOPRAMIDE HYDROCHLORIDE [Concomitant]
     Active Substance: METOCLOPRAMIDE HYDROCHLORIDE
     Dosage: UNK
  14. CHILDRENS ASPIRIN [Concomitant]
     Active Substance: ASPIRIN
     Dosage: UNK

REACTIONS (1)
  - Drug hypersensitivity [Unknown]
